FAERS Safety Report 6387944-9 (Version None)
Quarter: 2009Q4

REPORT INFORMATION
  Report Type: 
  Country: None (occurrence: None)
  Receive Date: 20091005
  Receipt Date: 20090924
  Transmission Date: 20100525
  Serious: Yes (Death)
  Sender: FDA-Public Use
  Company Number: US-AMGEN-QUU366193

PATIENT
  Sex: Female

DRUGS (6)
  1. NEUPOGEN [Suspect]
     Indication: CHEMOTHERAPY
     Dates: start: 20050601, end: 20071224
  2. NEULASTA [Suspect]
     Indication: CHEMOTHERAPY
     Route: 065
     Dates: start: 20050601, end: 20071224
  3. NEUMEGA [Concomitant]
     Dates: start: 20050601, end: 20071224
  4. LEUKINE [Concomitant]
     Dates: start: 20050601, end: 20071224
  5. UNSPECIFIED MEDICATION [Concomitant]
     Dates: start: 20050601, end: 20071224
  6. UNSPECIFIED ANTINEOPLASTIC AGENT [Concomitant]

REACTIONS (1)
  - DEATH [None]
